FAERS Safety Report 11302625 (Version 1)
Quarter: 2015Q3

REPORT INFORMATION
  Report Type: Report from Study
  Country: US (occurrence: US)
  Receive Date: 20150723
  Receipt Date: 20150723
  Transmission Date: 20151125
  Serious: Yes (Death)
  Sender: FDA-Public Use
  Company Number: US-BIOGENIDEC-2015BI102068

PATIENT
  Sex: Female

DRUGS (4)
  1. PIOGLITAZONE HCL [Concomitant]
     Active Substance: PIOGLITAZONE
  2. TECFIDERA [Suspect]
     Active Substance: DIMETHYL FUMARATE
     Indication: MULTIPLE SCLEROSIS
     Route: 048
     Dates: end: 201506
  3. OXYBUTYNIN CHLORIDE ER [Concomitant]
  4. HYDROCODONE BITARTRATE AND ACETAMINOPHEN [Concomitant]
     Active Substance: ACETAMINOPHEN\HYDROCODONE BITARTRATE

REACTIONS (1)
  - Myocardial infarction [Fatal]
